FAERS Safety Report 6940848-2 (Version None)
Quarter: 2010Q3

REPORT INFORMATION
  Report Type: 
  Country: None (occurrence: None)
  Receive Date: 20100825
  Receipt Date: 20100824
  Transmission Date: 20110219
  Serious: Yes (Hospitalization)
  Sender: FDA-Public Use
  Company Number: GXKR2010DE09410

PATIENT
  Age: 76 Year
  Sex: Male
  Weight: 80 kg

DRUGS (7)
  1. CLINDAMYCIN (NGX) [Interacting]
     Indication: TOOTH INFECTION
     Dosage: 600 MG, TID
     Route: 048
     Dates: start: 20100524, end: 20100530
  2. AZATHIOPRINE SODIUM [Interacting]
     Indication: MUSCULAR WEAKNESS
     Dosage: 25 MG, BID
     Route: 048
     Dates: start: 20100101, end: 20100607
  3. PREDNISOLONE (NGX) [Suspect]
     Indication: MUSCULAR WEAKNESS
     Dosage: 5 MG, QD
     Route: 048
     Dates: start: 20100301
  4. MESTINON [Suspect]
     Indication: MUSCULAR WEAKNESS
     Dosage: 180 MG, BID
     Dates: start: 20100301
  5. TAMSULOSIN HCL [Concomitant]
     Indication: BENIGN PROSTATIC HYPERPLASIA
     Dosage: 0.4 MG, QD
     Route: 048
  6. OMEPRAZOLE [Concomitant]
     Indication: PROPHYLAXIS
     Dosage: 20 MG, UNK
     Route: 048
  7. FENTANYL CITRATE [Concomitant]
     Indication: PAIN
     Dosage: UNK
     Route: 062
     Dates: start: 20090101

REACTIONS (1)
  - DIARRHOEA [None]
